FAERS Safety Report 6276409-0 (Version None)
Quarter: 2009Q3

REPORT INFORMATION
  Report Type: 
  Country: None (occurrence: None)
  Receive Date: 20090717
  Receipt Date: 20090717
  Transmission Date: 20100115
  Serious: Yes (Other)
  Sender: FDA-Public Use
  Company Number: None

PATIENT
  Age: 84 Year
  Sex: Female
  Weight: 76.2043 kg

DRUGS (1)
  1. RECLAST [Suspect]
     Indication: OSTEOPOROSIS
     Dosage: 5MG YEARLY INTRAVENOUS INFUSION
     Route: 042
     Dates: start: 20090701

REACTIONS (7)
  - CELLULITIS [None]
  - CONJUNCTIVAL HYPERAEMIA [None]
  - CONJUNCTIVAL OEDEMA [None]
  - EYELID PTOSIS [None]
  - MASS [None]
  - PAROPHTHALMIA [None]
  - VISUAL ACUITY REDUCED [None]
